FAERS Safety Report 6878467-9 (Version None)
Quarter: 2010Q3

REPORT INFORMATION
  Report Type: 
  Country: None (occurrence: None)
  Receive Date: 20100728
  Receipt Date: 20100719
  Transmission Date: 20110219
  Serious: Yes (Disabling)
  Sender: FDA-Public Use
  Company Number: PT-MERCK-1007PRT00012

PATIENT
  Age: 66 Year
  Sex: Male
  Weight: 51 kg

DRUGS (6)
  1. JANUVIA [Suspect]
     Indication: TYPE 2 DIABETES MELLITUS
     Route: 048
     Dates: start: 20100325, end: 20100326
  2. TOPIRAMATE [Concomitant]
     Indication: TYPE 2 DIABETES MELLITUS
     Route: 048
     Dates: start: 20100325, end: 20100326
  3. GLICLAZIDE [Suspect]
     Indication: TYPE 2 DIABETES MELLITUS
     Route: 048
     Dates: start: 20100325, end: 20100326
  4. METFORMIN [Concomitant]
     Indication: TYPE 2 DIABETES MELLITUS
     Route: 048
     Dates: start: 20050101
  5. FOSINOPRIL SODIUM [Concomitant]
     Indication: HYPERTENSION
     Route: 048
  6. GLICLAZIDE [Concomitant]
     Route: 065

REACTIONS (2)
  - ABDOMINAL PAIN LOWER [None]
  - MYALGIA [None]
